FAERS Safety Report 19064169 (Version 1)
Quarter: 2021Q1

REPORT INFORMATION
  Report Type: Spontaneous
  Country: ID (occurrence: ID)
  Receive Date: 20210326
  Receipt Date: 20210326
  Transmission Date: 20210420
  Serious: Yes (Other)
  Sender: FDA-Public Use
  Company Number: ID-ASTRAZENECA-2021A187003

PATIENT
  Age: 60 Year
  Sex: Female

DRUGS (6)
  1. ATORVASTATIN [Concomitant]
     Active Substance: ATORVASTATIN
     Indication: DYSLIPIDAEMIA
  2. FORXIGA [Suspect]
     Active Substance: DAPAGLIFLOZIN
     Indication: TYPE 2 DIABETES MELLITUS
     Route: 048
     Dates: start: 202011
  3. INSULIN PREMIX [Concomitant]
     Indication: TYPE 2 DIABETES MELLITUS
     Dosage: 28 UNIT AT MORNING, 28 UNIT AT AFTERNOON, 20 UNIT AT NIGHT
  4. METFORMIN [Concomitant]
     Active Substance: METFORMIN HYDROCHLORIDE
     Indication: TYPE 2 DIABETES MELLITUS
  5. AMLODIPINE [Concomitant]
     Active Substance: AMLODIPINE BESYLATE
     Indication: HYPERTENSION
  6. CANDESARTAN. [Concomitant]
     Active Substance: CANDESARTAN
     Indication: HYPERTENSION

REACTIONS (7)
  - Hypertension [Unknown]
  - Urinary tract infection bacterial [Recovered/Resolved]
  - Urinary tract infection fungal [Recovered/Resolved]
  - Diabetes mellitus inadequate control [Unknown]
  - Diabetic nephropathy [Unknown]
  - Obesity [Unknown]
  - Proteinuria [Unknown]
